FAERS Safety Report 7200741-7 (Version None)
Quarter: 2010Q4

REPORT INFORMATION
  Report Type: 
  Country: None (occurrence: None)
  Receive Date: 20101228
  Receipt Date: 20101220
  Transmission Date: 20110411
  Serious: Yes (Hospitalization)
  Sender: FDA-Public Use
  Company Number: US-ABBOTT-10P-163-0692507-00

PATIENT
  Sex: Female
  Weight: 63.56 kg

DRUGS (6)
  1. HUMIRA [Suspect]
     Indication: PSORIASIS
     Dates: start: 20100401
  2. CLONIDINE [Concomitant]
     Indication: BLOOD PRESSURE
  3. NIFEDITINE [Concomitant]
     Indication: BLOOD PRESSURE
  4. ACTOS [Concomitant]
     Indication: DIABETES MELLITUS
  5. UNKNOWN VIT [Concomitant]
     Indication: RENAL DISORDER
  6. LANTUS [Concomitant]
     Indication: DIABETES MELLITUS

REACTIONS (2)
  - MYOCARDIAL INFARCTION [None]
  - RENAL FAILURE [None]
